FAERS Safety Report 14003658 (Version 2)
Quarter: 2018Q1

REPORT INFORMATION
  Report Type: Spontaneous
  Country: US (occurrence: US)
  Receive Date: 20170922
  Receipt Date: 20180207
  Transmission Date: 20180508
  Serious: Yes (Hospitalization, Disabling)
  Sender: FDA-Public Use
  Company Number: US-JNJFOC-20170911080

PATIENT
  Age: 54 Year
  Sex: Male
  Weight: 98.88 kg

DRUGS (1)
  1. INVOKANA [Suspect]
     Active Substance: CANAGLIFLOZIN
     Indication: TYPE 2 DIABETES MELLITUS
     Route: 048
     Dates: start: 20140908

REACTIONS (8)
  - Skin ulcer [Unknown]
  - Wound dehiscence [Unknown]
  - Abscess limb [Unknown]
  - Osteomyelitis [Unknown]
  - Gangrene [Unknown]
  - Infected skin ulcer [Unknown]
  - Neuropathic arthropathy [Unknown]
  - Leg amputation [Unknown]

NARRATIVE: CASE EVENT DATE: 201505
